FAERS Safety Report 4323683-3 (Version None)
Quarter: 2004Q1

REPORT INFORMATION
  Report Type: 
  Country: None (occurrence: None)
  Receive Date: 20040323
  Receipt Date: 20040309
  Transmission Date: 20041129
  Serious: Yes (Hospitalization)
  Sender: FDA-Public Use
  Company Number: AU-JNJFOC-20040303976

PATIENT
  Age: 91 Year
  Sex: Female

DRUGS (4)
  1. TRAMAL (TRAMADOL HYDROCHLORIDE) UNSPECIFIED [Suspect]
     Indication: PAIN
     Dosage: 200 MG, IN 1 DAY, ORAL
     Route: 048
     Dates: start: 20030926, end: 20030926
  2. ZOLOFT [Suspect]
     Indication: DEPRESSION
     Dosage: SEE IMAGE
     Route: 048
     Dates: end: 20030926
  3. LASIX [Concomitant]
  4. COVERSYL (PERINDOPRIL) [Concomitant]

REACTIONS (2)
  - BACK PAIN [None]
  - MYOCLONUS [None]
